FAERS Safety Report 9586912 (Version 1)
Quarter: 2013Q4

REPORT INFORMATION
  Report Type: Report from Study
  Country: US (occurrence: US)
  Receive Date: 20131003
  Receipt Date: 20131003
  Transmission Date: 20140711
  Serious: Yes (Other)
  Sender: FDA-Public Use
  Company Number: US-JNJFOC-20130915608

PATIENT
  Sex: Female

DRUGS (1)
  1. REMICADE [Suspect]
     Indication: PSORIATIC ARTHROPATHY
     Dosage: DISCONTINUED IN APRIL OR MAY 2013
     Route: 042
     Dates: start: 2012, end: 2013

REACTIONS (2)
  - Meningitis [Recovered/Resolved]
  - Immune system disorder [Recovered/Resolved]
